FAERS Safety Report 20771868 (Version 1)
Quarter: 2022Q2

REPORT INFORMATION
  Report Type: Report from Study
  Country: GE (occurrence: GE)
  Receive Date: 20220430
  Receipt Date: 20220430
  Transmission Date: 20220720
  Serious: Yes (Hospitalization, Other)
  Sender: FDA-Public Use
  Company Number: GE-JNJFOC-A-CH2018-177213

PATIENT
  Age: 36 Year
  Sex: Male
  Weight: 75.8 kg

DRUGS (3)
  1. METHYLPREDNISOLONE [Suspect]
     Active Substance: METHYLPREDNISOLONE
     Indication: Relapsing-remitting multiple sclerosis
     Dosage: UNK
     Route: 042
     Dates: start: 20180802, end: 20180805
  2. PANTOPRAZOLE [Concomitant]
     Active Substance: PANTOPRAZOLE
     Indication: Multiple sclerosis
     Dosage: UNK
     Dates: start: 20180802
  3. KALIUM L-ASPARTATE W/MAGNESIUM ASPARTATE [Concomitant]
     Dosage: UNK
     Dates: start: 20180802

REACTIONS (6)
  - Gastroenteritis [Recovered/Resolved]
  - Large intestine infection [Recovered/Resolved]
  - Hypertransaminasaemia [Recovered/Resolved]
  - Steroid therapy [Unknown]
  - Multiple sclerosis relapse [Unknown]
  - Leukopenia [Unknown]

NARRATIVE: CASE EVENT DATE: 20180730
